FAERS Safety Report 23974880 (Version 1)
Quarter: 2024Q2

REPORT INFORMATION
  Report Type: Spontaneous
  Country: AU (occurrence: None)
  Receive Date: 20240614
  Receipt Date: 20240614
  Transmission Date: 20240715
  Serious: Yes (Other)
  Sender: FDA-Public Use
  Company Number: AU-Encube-000764

PATIENT
  Age: 83 Year
  Sex: Male

DRUGS (1)
  1. TRIAMCINOLONE ACETONIDE [Suspect]
     Active Substance: TRIAMCINOLONE ACETONIDE
     Indication: Cystoid macular oedema
     Dosage: SUB-TENON INJECTION

REACTIONS (3)
  - Eye abscess [Recovering/Resolving]
  - Off label use [Unknown]
  - Orbital compartment syndrome [Not Recovered/Not Resolved]
